FAERS Safety Report 21298304 (Version 1)
Quarter: 2022Q3

REPORT INFORMATION
  Report Type: Spontaneous
  Country: US (occurrence: None)
  Receive Date: 20220902
  Receipt Date: 20220902
  Transmission Date: 20221027
  Serious: No
  Sender: FDA-Public Use
  Company Number: None

PATIENT
  Age: 23 Year
  Sex: Female

DRUGS (2)
  1. GLATIRAMER [Suspect]
     Active Substance: GLATIRAMER
     Indication: Drug therapy
     Dates: start: 20220826, end: 20220826
  2. GLATIRAMER [Concomitant]
     Active Substance: GLATIRAMER
     Dates: start: 20220826, end: 20220826

REACTIONS (2)
  - Butterfly rash [None]
  - Rash [None]

NARRATIVE: CASE EVENT DATE: 20220826
